FAERS Safety Report 24535742 (Version 1)
Quarter: 2024Q4

REPORT INFORMATION
  Report Type: Spontaneous
  Country: US (occurrence: US)
  Receive Date: 20241022
  Receipt Date: 20241022
  Transmission Date: 20250115
  Serious: No
  Sender: PFIZER
  Company Number: US-PFIZER INC-202400281112

PATIENT

DRUGS (2)
  1. BACTERIOSTATIC WATER [Suspect]
     Active Substance: WATER
     Dosage: UNK
  2. TESTOSTERONE CYPIONATE [Suspect]
     Active Substance: TESTOSTERONE CYPIONATE
     Dosage: UNK

REACTIONS (2)
  - Hypersensitivity [Unknown]
  - Pain [Unknown]
